FAERS Safety Report 10229986 (Version 2)
Quarter: 2014Q3

REPORT INFORMATION
  Report Type: Spontaneous
  Country: JP (occurrence: None)
  Receive Date: 20140609
  Receipt Date: 20140902
  Transmission Date: 20150326
  Serious: Yes (Other)
  Sender: FDA-Public Use
  Company Number: AXC-2014-000349

PATIENT
  Age: 50 Year
  Sex: Male
  Weight: 79 kg

DRUGS (11)
  1. LOW MOLECULAR DEXTRAN L (CALCIUM CHLORIDE DIHYDRATE, DEXTRAN 40, POTASSIUM CHLORIDE, SODIUM CHLORIDE, SODIUM LACTATE) [Concomitant]
  2. PHYSIO 140 (CALCIUM GLUCONATE, GLUCOSE, MAGNESIUM CHLORIDE, POTASSIUM CHLORIDE, POTASSIUM PHOSPHATE MONOBASIC, SODIUM ACETATE, SODIUM CHLORIDE) UNKNOWN [Concomitant]
  3. BAYASPIRIN [Suspect]
     Active Substance: ASPIRIN
     Indication: CEREBRAL INFARCTION
     Route: 048
     Dates: start: 20140407, end: 20140407
  4. ASPIRIN. [Suspect]
     Active Substance: ASPIRIN
     Indication: PRODUCT USED FOR UNKNOWN INDICATION
     Route: 048
     Dates: start: 20140407
  5. LANSOPRAZOLE. [Suspect]
     Active Substance: LANSOPRAZOLE
     Indication: PRODUCT USED FOR UNKNOWN INDICATION
     Route: 048
     Dates: start: 20140410, end: 20140423
  6. PABURON S (PABURON S) [Concomitant]
  7. ARGATROBAN HYDRATE (ARGATROBAN) [Concomitant]
  8. BFLUID (AMINO ACIDS NOS, ELECTROLYTES NOS, GLUCOSE, THIAMINE HYDROCHLORIDE) [Concomitant]
  9. HISHIPHAGEN C (CYSTEINE HYDROCHLORIDE, GLYCINE, GLYCYRRHIZIC ACID) [Concomitant]
  10. GASTER D (FAMOTIDINE) [Concomitant]
  11. URSODEOXYCHOLIC ACID (URSODEOXYCHOLIC ACID) UNKNOWN) [Suspect]
     Active Substance: URSODIOL
     Indication: HEPATIC FUNCTION ABNORMAL
     Route: 048
     Dates: start: 20140417, end: 20140428

REACTIONS (1)
  - Drug-induced liver injury [None]

NARRATIVE: CASE EVENT DATE: 20140417
